FAERS Safety Report 6636523-4 (Version None)
Quarter: 2010Q1

REPORT INFORMATION
  Report Type: 
  Country: None (occurrence: None)
  Receive Date: 20100316
  Receipt Date: 20100308
  Transmission Date: 20100710
  Serious: Yes (Death)
  Sender: FDA-Public Use
  Company Number: US-BRACCO-001645

PATIENT
  Age: 5 Year
  Sex: Male

DRUGS (5)
  1. ISOVUE-370 [Suspect]
     Indication: WILLIAMS SYNDROME
     Route: 042
     Dates: start: 20080725, end: 20080725
  2. ISOVUE-370 [Suspect]
     Indication: COMPUTERISED TOMOGRAM CORONARY ARTERY
     Route: 042
     Dates: start: 20080725, end: 20080725
  3. ISOVUE-370 [Suspect]
     Indication: SUPRAVALVULAR AORTIC STENOSIS
     Route: 042
     Dates: start: 20080725, end: 20080725
  4. SUCCINYLCHOLINE CHLORIDE [Suspect]
     Indication: MUSCLE RELAXANT THERAPY
     Route: 065
     Dates: start: 20080725, end: 20080725
  5. SEVOFLURANE [Suspect]
     Indication: ANAESTHESIA
     Route: 055
     Dates: start: 20080725, end: 20080725

REACTIONS (1)
  - ANAPHYLACTIC REACTION [None]
